FAERS Safety Report 9002735 (Version 2)
Quarter: 2013Q4

REPORT INFORMATION
  Report Type: Spontaneous
  Country: US (occurrence: US)
  Receive Date: 20130107
  Receipt Date: 20131007
  Transmission Date: 20140711
  Serious: No
  Sender: FDA-Public Use
  Company Number: US-GLAXOSMITHKLINE-A0996826A

PATIENT
  Age: 74 Year
  Sex: Female

DRUGS (10)
  1. BENLYSTA [Suspect]
     Indication: SYSTEMIC LUPUS ERYTHEMATOSUS
     Dosage: 120MG EVERY 28 DAYS
     Route: 042
     Dates: start: 20110922
  2. VITAMIN D [Concomitant]
  3. HCTZ [Concomitant]
  4. LOPRESSOR [Concomitant]
  5. ATIVAN [Concomitant]
  6. CLARINEX [Concomitant]
  7. TRAZODONE [Concomitant]
  8. PRILOSEC [Concomitant]
  9. SENNA [Concomitant]
  10. VITAMIN C [Concomitant]

REACTIONS (6)
  - Alopecia [Not Recovered/Not Resolved]
  - Drug ineffective [Unknown]
  - Asthenia [Unknown]
  - Fatigue [Unknown]
  - Mood altered [Unknown]
  - Anxiety [Unknown]
